FAERS Safety Report 15566737 (Version 1)
Quarter: 2018Q4

REPORT INFORMATION
  Report Type: Spontaneous
  Country: FR (occurrence: FR)
  Receive Date: 20181030
  Receipt Date: 20181030
  Transmission Date: 20190205
  Serious: Yes (Hospitalization)
  Sender: FDA-Public Use
  Company Number: PHHY2018FR140364

PATIENT
  Age: 86 Year
  Sex: Female
  Weight: 62 kg

DRUGS (4)
  1. CUBICIN [Suspect]
     Active Substance: DAPTOMYCIN
     Indication: ARTHRITIS INFECTIVE
     Dosage: 700 MG, BID
     Route: 042
     Dates: start: 20180721, end: 20180831
  2. PIPERACILLIN. [Suspect]
     Active Substance: PIPERACILLIN SODIUM
     Indication: ARTHRITIS INFECTIVE
     Dosage: 8 G, QD
     Route: 042
     Dates: start: 20180721, end: 20180831
  3. CANCIDAS [Suspect]
     Active Substance: CASPOFUNGIN ACETATE
     Indication: FUNGAEMIA
     Dosage: 50 MG, QD
     Route: 042
     Dates: start: 20180816, end: 20180907
  4. TAZOBACTAM [Suspect]
     Active Substance: TAZOBACTAM
     Indication: ARTHRITIS INFECTIVE
     Dosage: 1000 MG, QD
     Route: 042
     Dates: start: 20180721, end: 20180831

REACTIONS (1)
  - Drug reaction with eosinophilia and systemic symptoms [Recovering/Resolving]

NARRATIVE: CASE EVENT DATE: 20180901
